FAERS Safety Report 24736376 (Version 1)
Quarter: 2024Q4

REPORT INFORMATION
  Report Type: Spontaneous
  Country: US (occurrence: US)
  Receive Date: 20241216
  Receipt Date: 20241216
  Transmission Date: 20250114
  Serious: Yes (Life-Threatening, Hospitalization, Other)
  Sender: ZYDUS PHARM
  Company Number: US-CADILA HEALTHCARE LIMITED-US-ZYDUS-116318

PATIENT

DRUGS (6)
  1. DOXORUBICIN [Suspect]
     Active Substance: DOXORUBICIN
     Indication: Yolk sac tumour site unspecified
     Dosage: 30 MILLIGRAM/SQ. METER, OVER 15 MINUTES
     Route: 042
  2. DOXORUBICIN [Suspect]
     Active Substance: DOXORUBICIN
     Indication: Choriocarcinoma
  3. CISPLATIN [Suspect]
     Active Substance: CISPLATIN
     Indication: Yolk sac tumour site unspecified
     Dosage: 30 MILLIGRAM/SQ. METER,OVER 2 HOURS
     Route: 042
  4. CISPLATIN [Suspect]
     Active Substance: CISPLATIN
     Indication: Choriocarcinoma
  5. PACLITAXEL [Suspect]
     Active Substance: PACLITAXEL
     Indication: Yolk sac tumour site unspecified
     Dosage: 100 MILLIGRAM/SQ. METER
     Route: 042
  6. PACLITAXEL [Suspect]
     Active Substance: PACLITAXEL
     Indication: Choriocarcinoma

REACTIONS (4)
  - Respiratory failure [Unknown]
  - Dyspnoea [Unknown]
  - Thrombocytopenia [Unknown]
  - Pneumocystis jirovecii pneumonia [Unknown]
